FAERS Safety Report 11052162 (Version 1)
Quarter: 2015Q2

REPORT INFORMATION
  Report Type: Spontaneous
  Country: HU (occurrence: HU)
  Receive Date: 20150421
  Receipt Date: 20150421
  Transmission Date: 20150821
  Serious: Yes (Other)
  Sender: FDA-Public Use
  Company Number: HU-ELI_LILLY_AND_COMPANY-HU201504002965

PATIENT
  Age: 61 Year
  Sex: Female
  Weight: 113 kg

DRUGS (43)
  1. HUMALOG [Suspect]
     Active Substance: INSULIN LISPRO
     Dosage: 16 IU, EACH MORNING
     Route: 065
     Dates: start: 201209, end: 201301
  2. HUMALOG [Suspect]
     Active Substance: INSULIN LISPRO
     Dosage: 12 IU, QD
     Route: 065
     Dates: start: 201209, end: 201301
  3. HUMULIN R [Suspect]
     Active Substance: INSULIN HUMAN
     Dosage: 8 IU, EACH EVENING
     Route: 065
     Dates: start: 200808, end: 200910
  4. HUMULIN R [Suspect]
     Active Substance: INSULIN HUMAN
     Dosage: 6 IU, QD
     Route: 065
     Dates: start: 201301, end: 201502
  5. LANTUS [Suspect]
     Active Substance: INSULIN GLARGINE
     Indication: DIABETES MELLITUS
     Dosage: 32 IU, QD
     Route: 065
     Dates: start: 200910, end: 201004
  6. GLIMEPIRID [Concomitant]
     Active Substance: GLIMEPIRIDE
     Dosage: UNK
     Dates: start: 1997
  7. HUMALOG [Suspect]
     Active Substance: INSULIN LISPRO
     Dosage: 12 IU, QD
     Route: 065
     Dates: start: 201004, end: 201008
  8. HUMALOG [Suspect]
     Active Substance: INSULIN LISPRO
     Dosage: 16 IU, EACH MORNING
     Route: 065
     Dates: start: 20150319
  9. HUMULIN R [Suspect]
     Active Substance: INSULIN HUMAN
     Dosage: 14 IU, EACH MORNING
     Route: 065
     Dates: start: 201301, end: 201502
  10. HUMULIN R [Suspect]
     Active Substance: INSULIN HUMAN
     Dosage: 10 IU, EACH EVENING
     Route: 065
     Dates: start: 201301, end: 201502
  11. LANTUS [Suspect]
     Active Substance: INSULIN GLARGINE
     Dosage: 36 IU, QD
     Route: 065
     Dates: start: 201008, end: 201209
  12. LANTUS [Suspect]
     Active Substance: INSULIN GLARGINE
     Dosage: 52 IU, QD
     Route: 065
     Dates: start: 201209, end: 201301
  13. METFORMIN [Concomitant]
     Active Substance: METFORMIN HYDROCHLORIDE
     Dosage: UNK
     Dates: start: 1997
  14. HUMALOG [Suspect]
     Active Substance: INSULIN LISPRO
     Dosage: 14 IU, EACH MORNING
     Route: 065
     Dates: start: 201004, end: 201008
  15. HUMULIN R [Suspect]
     Active Substance: INSULIN HUMAN
     Dosage: 8 IU, QD
     Route: 065
     Dates: end: 200808
  16. HUMULIN N [Suspect]
     Active Substance: INSULIN HUMAN
     Dosage: 32 IU, EACH MORNING
     Route: 065
     Dates: start: 201301, end: 201502
  17. LANTUS [Suspect]
     Active Substance: INSULIN GLARGINE
     Dosage: 40 IU, QD
     Route: 065
     Dates: start: 201004, end: 201008
  18. HUMALOG [Suspect]
     Active Substance: INSULIN LISPRO
     Dosage: 6 IU, QD
     Route: 065
     Dates: start: 20150319
  19. HUMULIN N [Suspect]
     Active Substance: INSULIN HUMAN
     Dosage: 18 IU, EACH EVENING
     Route: 065
     Dates: start: 200910, end: 200910
  20. HUMALOG [Suspect]
     Active Substance: INSULIN LISPRO
     Dosage: 10 IU, QD
     Route: 065
     Dates: start: 200910, end: 201004
  21. HUMALOG [Suspect]
     Active Substance: INSULIN LISPRO
     Dosage: 12 IU, TID
     Route: 065
     Dates: start: 201008, end: 201209
  22. HUMALOG [Suspect]
     Active Substance: INSULIN LISPRO
     Dosage: 10 IU, EACH EVENING
     Route: 065
     Dates: start: 20150319
  23. HUMULIN R [Suspect]
     Active Substance: INSULIN HUMAN
     Dosage: 14 IU, EACH EVENING
     Route: 065
     Dates: start: 200910, end: 200910
  24. HUMULIN R [Suspect]
     Active Substance: INSULIN HUMAN
     Dosage: 10 IU, QD
     Route: 065
     Dates: start: 201502, end: 20150319
  25. HUMULIN N [Suspect]
     Active Substance: INSULIN HUMAN
     Dosage: 14 IU, EACH MORNING
     Route: 065
     Dates: start: 200808, end: 200910
  26. HUMULIN N [Suspect]
     Active Substance: INSULIN HUMAN
     Dosage: 18 IU, EACH EVENING
     Route: 065
     Dates: start: 201502, end: 20150319
  27. HUMULIN R [Suspect]
     Active Substance: INSULIN HUMAN
     Indication: DIABETES MELLITUS
     Dosage: 14 IU, EACH MORNING
     Route: 065
     Dates: end: 200808
  28. HUMULIN R [Suspect]
     Active Substance: INSULIN HUMAN
     Dosage: 6 IU, QD
     Route: 065
     Dates: start: 200808, end: 200910
  29. HUMULIN R [Suspect]
     Active Substance: INSULIN HUMAN
     Dosage: 16 IU, EACH MORNING
     Route: 065
     Dates: start: 200910, end: 200910
  30. HUMULIN R [Suspect]
     Active Substance: INSULIN HUMAN
     Dosage: 16 IU, EACH MORNING
     Route: 065
     Dates: start: 201502, end: 20150319
  31. HUMULIN R [Suspect]
     Active Substance: INSULIN HUMAN
     Dosage: 14 IU, EACH EVENING
     Route: 065
     Dates: start: 201502, end: 20150319
  32. HUMULIN N [Suspect]
     Active Substance: INSULIN HUMAN
     Dosage: 24 IU, EACH MORNING
     Route: 065
     Dates: start: 200910, end: 200910
  33. HUMALOG [Suspect]
     Active Substance: INSULIN LISPRO
     Indication: DIABETES MELLITUS
     Dosage: 12 IU, BID
     Route: 065
     Dates: start: 200910, end: 201004
  34. HUMALOG [Suspect]
     Active Substance: INSULIN LISPRO
     Dosage: 14 IU, EACH EVENING
     Route: 065
     Dates: start: 201209, end: 201301
  35. HUMULIN R [Suspect]
     Active Substance: INSULIN HUMAN
     Dosage: 10 IU, EACH EVENING
     Route: 065
     Dates: end: 200808
  36. HUMALOG [Suspect]
     Active Substance: INSULIN LISPRO
     Dosage: 12 IU, EACH EVENING
     Route: 065
     Dates: start: 201004, end: 201008
  37. HUMULIN R [Suspect]
     Active Substance: INSULIN HUMAN
     Dosage: 12 IU, EACH MORNING
     Route: 065
     Dates: start: 200808, end: 200910
  38. HUMULIN R [Suspect]
     Active Substance: INSULIN HUMAN
     Dosage: 10 IU, QD
     Route: 065
     Dates: start: 200910, end: 200910
  39. HUMULIN N [Suspect]
     Active Substance: INSULIN HUMAN
     Indication: DIABETES MELLITUS
     Dosage: 16 IU, QD
     Route: 065
     Dates: end: 200808
  40. HUMULIN N [Suspect]
     Active Substance: INSULIN HUMAN
     Dosage: 12 IU, EACH EVENING
     Route: 065
     Dates: start: 200808, end: 200910
  41. HUMULIN N [Suspect]
     Active Substance: INSULIN HUMAN
     Dosage: 16 IU, EACH EVENING
     Route: 065
     Dates: start: 201301, end: 201502
  42. HUMULIN N [Suspect]
     Active Substance: INSULIN HUMAN
     Dosage: 36 IU, EACH MORNING
     Route: 065
     Dates: start: 201502, end: 20150319
  43. LANTUS [Suspect]
     Active Substance: INSULIN GLARGINE
     Dosage: 46 IU, QD
     Route: 065
     Dates: start: 20150319

REACTIONS (11)
  - Weight increased [Not Recovered/Not Resolved]
  - Cerebrovascular disorder [Unknown]
  - Diabetic neuropathy [Unknown]
  - Angiopathy [Unknown]
  - Polyuria [Unknown]
  - Blood glucose increased [Recovering/Resolving]
  - Hypometabolism [Not Recovered/Not Resolved]
  - Polydipsia [Unknown]
  - Hypoglycaemia [Unknown]
  - Cerebrovascular accident [Unknown]
  - Glycosylated haemoglobin increased [Not Recovered/Not Resolved]

NARRATIVE: CASE EVENT DATE: 200803
